FAERS Safety Report 21044171 (Version 1)
Quarter: 2022Q3

REPORT INFORMATION
  Report Type: Other
  Country: CN (occurrence: None)
  Receive Date: 20220705
  Receipt Date: 20220705
  Transmission Date: 20221027
  Serious: Yes (Other)
  Sender: FDA-Public Use
  Company Number: CN-ROCHE-3129385

PATIENT
  Sex: Female

DRUGS (3)
  1. PERTUZUMAB [Suspect]
     Active Substance: PERTUZUMAB
     Indication: HER2 positive breast cancer
     Dosage: STARTING DOSE
     Route: 065
  2. PERTUZUMAB [Suspect]
     Active Substance: PERTUZUMAB
     Dosage: 21 DAYS FOR ONE THERAPEUTIC CYCLE, 4 CYCLES OF TREATMENT
     Route: 065
  3. DOXORUBICIN HYDROCHLORIDE [Suspect]
     Active Substance: DOXORUBICIN HYDROCHLORIDE
     Indication: HER2 positive breast cancer
     Dosage: ON DAY 1. 21 DAYS WAS ONE TREATMENT CYCLE AND FOUR CYCLE WERE TREATED.
     Route: 041

REACTIONS (1)
  - Myelosuppression [Unknown]
